FAERS Safety Report 5577783-0 (Version None)
Quarter: 2007Q4

REPORT INFORMATION
  Report Type: 
  Country: None (occurrence: None)
  Receive Date: 20071231
  Receipt Date: 20071219
  Transmission Date: 20080405
  Serious: Yes (Other)
  Sender: FDA-Public Use
  Company Number: US-TYCO HEALTHCARE/MALLINCKRODT-T200701544

PATIENT

DRUGS (4)
  1. OPTIRAY 300 [Suspect]
     Indication: COMPUTERISED TOMOGRAM THORAX
     Dosage: 125 ML, SINGLE
     Route: 042
     Dates: start: 20071211, end: 20071211
  2. PREDNISONE TAB [Concomitant]
     Indication: PREMEDICATION
     Dosage: 50 MG, SINGLE (NIGHT BEFORE SCAN)
     Route: 048
     Dates: start: 20071210, end: 20071210
  3. PREDNISONE TAB [Concomitant]
     Dosage: 50 MG, SINGLE (MORNING OF SCAN)
     Route: 048
     Dates: start: 20071211, end: 20071211
  4. BENADRYL [Concomitant]
     Indication: PREMEDICATION
     Dosage: 50 MG, SINGLE (2 HOURS BEFORE SCAN)
     Route: 048
     Dates: start: 20071211, end: 20071211

REACTIONS (2)
  - ANAPHYLACTIC REACTION [None]
  - LOSS OF CONSCIOUSNESS [None]
